FAERS Safety Report 4335964-8 (Version None)
Quarter: 2004Q2

REPORT INFORMATION
  Report Type: 
  Country: None (occurrence: None)
  Receive Date: 20040406
  Receipt Date: 20040330
  Transmission Date: 20050107
  Serious: Yes (Hospitalization, Disabling)
  Sender: FDA-Public Use
  Company Number: 2003SE01998

PATIENT
  Age: 53 Year
  Sex: Female

DRUGS (12)
  1. CARBOCAINE [Suspect]
     Indication: HYSTERECTOMY
     Dates: start: 19990817, end: 19990817
  2. CARBOCAINE [Suspect]
     Indication: SALPINGO-OOPHORECTOMY
     Dates: start: 19990817, end: 19990817
  3. MARCAINE HCL W/ EPINEPHRINE [Suspect]
     Indication: HYSTERECTOMY
     Dates: start: 19990817, end: 19990817
  4. MARCAINE HCL W/ EPINEPHRINE [Suspect]
     Indication: SALPINGO-OOPHORECTOMY
     Dates: start: 19990817, end: 19990817
  5. DIPRIVAN [Concomitant]
  6. ALVEDON [Concomitant]
  7. EFEDRIN [Concomitant]
  8. ZINACEF [Concomitant]
  9. ROBINUL [Concomitant]
  10. FLUSCAND [Concomitant]
  11. DICLOFENAC ^NM PHARMA^ [Concomitant]
  12. ZOFRAN [Concomitant]

REACTIONS (15)
  - ANAESTHETIC COMPLICATION [None]
  - BLADDER DISORDER [None]
  - CAUDA EQUINA SYNDROME [None]
  - DIFFICULTY IN WALKING [None]
  - GAIT DISTURBANCE [None]
  - HAEMANGIOMA [None]
  - HEPATIC CYST [None]
  - INTERVERTEBRAL DISC PROTRUSION [None]
  - MICTURITION DISORDER [None]
  - NEUROPATHY PERIPHERAL [None]
  - PAIN [None]
  - PNEUMONIA [None]
  - RESIDUAL URINE VOLUME [None]
  - SWELLING [None]
  - URINARY TRACT INFECTION [None]
